FAERS Safety Report 23569572 (Version 2)
Quarter: 2024Q3

REPORT INFORMATION
  Report Type: Report from Study
  Country: US (occurrence: US)
  Receive Date: 20240227
  Receipt Date: 20240726
  Transmission Date: 20241017
  Serious: Yes (Other)
  Sender: INSMED
  Company Number: US-INSMED, INC.-2023-04561-US

PATIENT
  Sex: Female

DRUGS (3)
  1. ARIKAYCE [Suspect]
     Active Substance: AMIKACIN
     Indication: Mycobacterial infection
     Dosage: 590 MILLIGRAM, QD
     Route: 055
     Dates: start: 20230821
  2. LINEZOLID [Suspect]
     Active Substance: LINEZOLID
     Indication: Product used for unknown indication
     Dosage: UNK, UNK
     Route: 065
     Dates: end: 2023
  3. AZITHROMYCIN [Suspect]
     Active Substance: AZITHROMYCIN
     Indication: Product used for unknown indication
     Dosage: UNK, UNK
     Route: 065

REACTIONS (4)
  - Peripheral nerve injury [Unknown]
  - Deafness [Not Recovered/Not Resolved]
  - Hypoacusis [Not Recovered/Not Resolved]
  - Therapy interrupted [Unknown]

NARRATIVE: CASE EVENT DATE: 20230101
